FAERS Safety Report 14553601 (Version 4)
Quarter: 2018Q2

REPORT INFORMATION
  Report Type: Report from Study
  Country: US (occurrence: US)
  Receive Date: 20180220
  Receipt Date: 20180502
  Transmission Date: 20180711
  Serious: No
  Sender: FDA-Public Use
  Company Number: US-INCYTE CORPORATION-2018IN001290

PATIENT

DRUGS (11)
  1. LISINOPRIL AND HYDROCHLOROTHIAZIDE [Concomitant]
     Active Substance: HYDROCHLOROTHIAZIDE\LISINOPRIL
     Indication: PRODUCT USED FOR UNKNOWN INDICATION
     Route: 065
  2. ARMOUR THYROID [Concomitant]
     Active Substance: THYROID, PORCINE
     Indication: PRODUCT USED FOR UNKNOWN INDICATION
     Route: 065
  3. TOPROL XL [Concomitant]
     Active Substance: METOPROLOL SUCCINATE
     Indication: PRODUCT USED FOR UNKNOWN INDICATION
     Route: 065
  4. JAKAFI [Suspect]
     Active Substance: RUXOLITINIB
     Indication: ESSENTIAL THROMBOCYTHAEMIA
     Dosage: 5 MG, BID
     Route: 048
     Dates: start: 20180129, end: 20180409
  5. LEVAQUIN [Concomitant]
     Active Substance: LEVOFLOXACIN
     Indication: PRODUCT USED FOR UNKNOWN INDICATION
     Route: 065
  6. HYDROXYZINE [Concomitant]
     Active Substance: HYDROXYZINE HYDROCHLORIDE
     Indication: PRODUCT USED FOR UNKNOWN INDICATION
     Route: 065
  7. JAKAFI [Suspect]
     Active Substance: RUXOLITINIB
     Dosage: 5 MG, QD
     Route: 048
     Dates: start: 20180203
  8. JAKAFI [Suspect]
     Active Substance: RUXOLITINIB
     Dosage: 5 MG, QD
     Route: 065
     Dates: start: 20180410
  9. HYDROXYUREA. [Concomitant]
     Active Substance: HYDROXYUREA
     Indication: ESSENTIAL THROMBOCYTHAEMIA
     Dosage: 500 MG, QD
     Route: 065
     Dates: start: 20161012, end: 20180108
  10. LISINOPRIL. [Concomitant]
     Active Substance: LISINOPRIL
     Indication: HYPERTENSION
     Dosage: 10 MG, QD
     Route: 065
     Dates: start: 20180326
  11. PAXIL [Concomitant]
     Active Substance: PAROXETINE HYDROCHLORIDE
     Indication: PRODUCT USED FOR UNKNOWN INDICATION
     Route: 065

REACTIONS (8)
  - Gastrooesophageal reflux disease [Unknown]
  - White blood cell count increased [Unknown]
  - Dizziness postural [Unknown]
  - Back pain [Unknown]
  - Anaemia [Not Recovered/Not Resolved]
  - Dyspnoea [Unknown]
  - Palpitations [Unknown]
  - Fatigue [Unknown]

NARRATIVE: CASE EVENT DATE: 20180409
